FAERS Safety Report 4378436-7 (Version None)
Quarter: 2004Q2

REPORT INFORMATION
  Report Type: 
  Country: None (occurrence: None)
  Receive Date: 20040609
  Receipt Date: 20040528
  Transmission Date: 20050107
  Serious: Yes (Other)
  Sender: FDA-Public Use
  Company Number: 2004209288CA

PATIENT
  Sex: Male
  Weight: 2.7 kg

DRUGS (3)
  1. DEPO-PROVERA [Suspect]
     Indication: CONTRACEPTION
     Dosage: 150 MG, FIRST INJECTION, INTRAMUSCULAR
     Route: 030
     Dates: start: 20020715, end: 20020715
  2. MATERNA 1.60 (VITAMINS NOS, DOCUSATE SODIUM) [Concomitant]
  3. FOLIC ACID [Concomitant]

REACTIONS (9)
  - ASTHMA [None]
  - CARDIAC ARREST NEONATAL [None]
  - DRUG EXPOSURE DURING PREGNANCY [None]
  - DYSPNOEA [None]
  - HAEMORRHAGE [None]
  - PREGNANCY WITH INJECTABLE CONTRACEPTIVE [None]
  - PREMATURE BABY [None]
  - RESPIRATION ABNORMAL [None]
  - WEIGHT FLUCTUATION [None]
